FAERS Safety Report 4837090-8 (Version None)
Quarter: 2005Q4

REPORT INFORMATION
  Report Type: 
  Country: None (occurrence: None)
  Receive Date: 20051121
  Receipt Date: 20051121
  Transmission Date: 20060501
  Serious: Yes (Other)
  Sender: FDA-Public Use
  Company Number: None

PATIENT
  Age: 58 Year
  Sex: Female
  Weight: 70.3075 kg

DRUGS (2)
  1. ZICAM NASAL SWABS ZICAM LLC [Suspect]
     Indication: INFLUENZA
     Dosage: PER LABEL PER LABEL NASAL
     Route: 045
     Dates: start: 20050330, end: 20050403
  2. ZICAM NASAL SWABS ZICAM LLC [Suspect]
     Indication: NASOPHARYNGITIS
     Dosage: PER LABEL PER LABEL NASAL
     Route: 045
     Dates: start: 20050330, end: 20050403

REACTIONS (3)
  - ANOSMIA [None]
  - DYSGEUSIA [None]
  - HYPOSMIA [None]
